FAERS Safety Report 4314401-3 (Version None)
Quarter: 2004Q1

REPORT INFORMATION
  Report Type: 
  Country: None (occurrence: None)
  Receive Date: 20040309
  Receipt Date: 20040304
  Transmission Date: 20041129
  Serious: Yes (Disabling)
  Sender: FDA-Public Use
  Company Number: US-GLAXOSMITHKLINE-A0501208A

PATIENT
  Sex: Female

DRUGS (2)
  1. COMBIVIR [Suspect]
     Dosage: 1TAB TWICE PER DAY
     Route: 048
     Dates: start: 20000707, end: 20000818
  2. CRIXIVAN [Concomitant]

REACTIONS (11)
  - ATAXIA [None]
  - DYSPNOEA [None]
  - GASTRIC DISORDER [None]
  - HYPOTHYROIDISM [None]
  - INCONTINENCE [None]
  - MENTAL IMPAIRMENT [None]
  - NAUSEA [None]
  - NERVOUS SYSTEM DISORDER [None]
  - NEUROPATHY PERIPHERAL [None]
  - POST-TRAUMATIC STRESS DISORDER [None]
  - SLEEP DISORDER [None]
